FAERS Safety Report 25902594 (Version 1)
Quarter: 2025Q4

REPORT INFORMATION
  Report Type: Spontaneous
  Country: US (occurrence: None)
  Receive Date: 20251006
  Receipt Date: 20251006
  Transmission Date: 20260118
  Serious: No
  Sender: FDA-CTU
  Company Number: None

PATIENT
  Age: 43 Year
  Sex: Female
  Weight: 60.75 kg

DRUGS (2)
  1. MENTHOL\METHYL SALICYLATE [Suspect]
     Active Substance: MENTHOL\METHYL SALICYLATE
     Indication: Nasal congestion
     Dosage: OTHER STRENGTH : NOT LISTED;?OTHER QUANTITY : 1 INHALATION(S);?OTHER FREQUENCY : AS NEEDED;?
     Route: 055
     Dates: start: 20251001, end: 20251003
  2. OMEPRAZOLE [Concomitant]
     Active Substance: OMEPRAZOLE

REACTIONS (6)
  - Throat irritation [None]
  - Respiratory tract irritation [None]
  - Feeling abnormal [None]
  - Cough [None]
  - Therapy cessation [None]
  - Product formulation issue [None]

NARRATIVE: CASE EVENT DATE: 20251003
